FAERS Safety Report 22396899 (Version 3)
Quarter: 2023Q2

REPORT INFORMATION
  Report Type: Spontaneous
  Country: US (occurrence: US)
  Receive Date: 20230601
  Receipt Date: 20230601
  Transmission Date: 20230721
  Serious: No
  Sender: FDA-Public Use
  Company Number: US-APIL-2315057US

PATIENT
  Age: 90 Year
  Sex: Male
  Weight: 76.203 kg

DRUGS (6)
  1. DURYSTA [Suspect]
     Active Substance: BIMATOPROST
     Indication: Ocular discomfort
     Dosage: 10 ?G, SINGLE
     Route: 031
     Dates: start: 20230301
  2. DURYSTA [Suspect]
     Active Substance: BIMATOPROST
     Indication: Glaucoma
  3. DURYSTA [Suspect]
     Active Substance: BIMATOPROST
     Indication: Ocular discomfort
     Dosage: 10 ?G, SINGLE
     Route: 031
     Dates: start: 20230222
  4. DURYSTA [Suspect]
     Active Substance: BIMATOPROST
     Indication: Glaucoma
  5. DURYSTA [Suspect]
     Active Substance: BIMATOPROST
     Indication: Ocular discomfort
     Dosage: 10 ?G, SINGLE
     Route: 031
     Dates: start: 2022
  6. DURYSTA [Suspect]
     Active Substance: BIMATOPROST
     Indication: Glaucoma

REACTIONS (7)
  - Eye irritation [Not Recovered/Not Resolved]
  - Photophobia [Not Recovered/Not Resolved]
  - Ocular hyperaemia [Not Recovered/Not Resolved]
  - Eye pain [Not Recovered/Not Resolved]
  - Foreign body sensation in eyes [Not Recovered/Not Resolved]
  - Dry eye [Not Recovered/Not Resolved]
  - Vision blurred [Not Recovered/Not Resolved]

NARRATIVE: CASE EVENT DATE: 20230501
